FAERS Safety Report 9738297 (Version 1)
Quarter: 2013Q4

REPORT INFORMATION
  Report Type: Spontaneous
  Country: IT (occurrence: IT)
  Receive Date: 20131208
  Receipt Date: 20131208
  Transmission Date: 20140711
  Serious: Yes (Other)
  Sender: FDA-Public Use
  Company Number: IT-TEVA-447877ISR

PATIENT
  Age: 59 Year
  Sex: Female
  Weight: 90 kg

DRUGS (1)
  1. METFORMINA TEVA ITALIA 1000 MG [Suspect]
     Indication: DIABETES MELLITUS
     Dosage: 3000 MILLIGRAM DAILY;
     Route: 048
     Dates: start: 20000201, end: 20130320

REACTIONS (2)
  - Dysentery [Recovered/Resolved]
  - Abdominal pain [Recovered/Resolved]
